FAERS Safety Report 7065102-2 (Version None)
Quarter: 2010Q4

REPORT INFORMATION
  Report Type: 
  Country: None (occurrence: None)
  Receive Date: 20101022
  Receipt Date: 20101022
  Transmission Date: 20110411
  Serious: Yes (Life-Threatening, Hospitalization)
  Sender: FDA-Public Use
  Company Number: None

PATIENT
  Age: 61 Year
  Sex: Male
  Weight: 99 kg

DRUGS (2)
  1. MULTAQ [Suspect]
     Indication: ATRIAL FIBRILLATION
     Dosage: 400 MG TWICE DAILY PO RECENTLY STARTED
     Route: 048
  2. SIMVASTATIN [Suspect]
     Indication: CARDIAC DISORDER
     Dosage: 40 MG DAILY PO MED STOPPED ON ADMIT
     Route: 048

REACTIONS (4)
  - ASTHENIA [None]
  - PRESYNCOPE [None]
  - RENAL FAILURE ACUTE [None]
  - RHABDOMYOLYSIS [None]
